FAERS Safety Report 8538259-1 (Version None)
Quarter: 2012Q3

REPORT INFORMATION
  Report Type: 
  Country: None (occurrence: None)
  Receive Date: 20120726
  Receipt Date: 20120718
  Transmission Date: 20120928
  Serious: No
  Sender: FDA-Public Use
  Company Number: US-BIOGENIDEC-2012BI026635

PATIENT
  Age: 62 Year
  Sex: Female

DRUGS (9)
  1. TYSABRI [Suspect]
     Indication: MULTIPLE SCLEROSIS
     Route: 042
     Dates: start: 20120406
  2. NITROFURANTOIN [Concomitant]
     Indication: INFECTION PROPHYLAXIS
     Route: 048
  3. PROVIGIL [Concomitant]
     Indication: ASTHENIA
     Route: 048
  4. NAPROXEN [Concomitant]
     Indication: PAIN
     Route: 048
  5. C 4 AMINOPYRIDINE [Concomitant]
     Indication: GAIT DISTURBANCE
     Route: 048
  6. NEURONTIN [Concomitant]
     Indication: PAIN
     Route: 048
  7. EFFEXOR XR [Concomitant]
     Indication: ANXIETY
     Route: 048
  8. BACLOFEN [Concomitant]
     Indication: MUSCLE SPASTICITY
     Route: 048
  9. CALCIUM WITH VITAMIN D [Concomitant]
     Indication: VITAMIN SUPPLEMENTATION
     Route: 048

REACTIONS (2)
  - ABASIA [None]
  - ASTHENIA [None]
